FAERS Safety Report 7544492-8 (Version None)
Quarter: 2011Q2

REPORT INFORMATION
  Report Type: 
  Country: None (occurrence: None)
  Receive Date: 20110613
  Receipt Date: 20110606
  Transmission Date: 20111010
  Serious: Yes (Death, Hospitalization)
  Sender: FDA-Public Use
  Company Number: US-GILEAD-2011-0039517

PATIENT
  Sex: Female

DRUGS (4)
  1. LETAIRIS [Suspect]
     Indication: VENTRICULAR SEPTAL DEFECT
  2. LETAIRIS [Suspect]
     Indication: HEART DISEASE CONGENITAL
  3. LETAIRIS [Suspect]
     Indication: VENTRICULAR SEPTAL DEFECT REPAIR
  4. LETAIRIS [Suspect]
     Indication: PULMONARY HYPERTENSION
     Route: 048
     Dates: start: 20080826

REACTIONS (4)
  - VENTRICULAR FIBRILLATION [None]
  - BLOOD POTASSIUM DECREASED [None]
  - SUDDEN CARDIAC DEATH [None]
  - ROAD TRAFFIC ACCIDENT [None]
